FAERS Safety Report 9562037 (Version 1)
Quarter: 2013Q3

REPORT INFORMATION
  Report Type: Spontaneous
  Country: US (occurrence: US)
  Receive Date: 20130927
  Receipt Date: 20130927
  Transmission Date: 20140515
  Serious: Yes (Other)
  Sender: FDA-Public Use
  Company Number: US-PFIZER INC-2013274779

PATIENT
  Sex: Female

DRUGS (4)
  1. DETROL LA [Suspect]
     Dosage: 2 MG, UNK
     Route: 048
  2. DETROL LA [Suspect]
     Dosage: 4 MG, UNK
     Route: 048
  3. ZETIA [Concomitant]
     Indication: BLOOD CHOLESTEROL ABNORMAL
     Dosage: UNK
  4. ACTONEL [Concomitant]
     Indication: BONE DISORDER
     Dosage: UNK

REACTIONS (7)
  - Heart rate irregular [Unknown]
  - Chest pain [Unknown]
  - Hypotension [Unknown]
  - Oropharyngeal pain [Unknown]
  - Flatulence [Unknown]
  - Musculoskeletal chest pain [Unknown]
  - Dyspepsia [Recovered/Resolved]
